FAERS Safety Report 18891626 (Version 2)
Quarter: 2021Q3

REPORT INFORMATION
  Report Type: Other
  Country: IT (occurrence: IT)
  Receive Date: 20210215
  Receipt Date: 20210920
  Transmission Date: 20211014
  Serious: Yes (Death, Hospitalization)
  Sender: FDA-Public Use
  Company Number: IT-ROCHE-2766434

PATIENT

DRUGS (24)
  1. RITUXIMAB. [Suspect]
     Active Substance: RITUXIMAB
     Indication: DIFFUSE LARGE B-CELL LYMPHOMA
     Dosage: 6 CYCLES OF RITUXIMAB, ALONG WITH BENDAMUSTINE
     Route: 041
  2. BENDAMUSTINE [Suspect]
     Active Substance: BENDAMUSTINE
     Indication: DIFFUSE LARGE B-CELL LYMPHOMA
     Dosage: 6 CYCLES
     Route: 065
  3. VINCRISTINE [Suspect]
     Active Substance: VINCRISTINE
     Indication: NON-HODGKIN^S LYMPHOMA
     Dosage: 8 CYCLES OF RCHOP
     Route: 065
  4. IFOSFAMIDE. [Suspect]
     Active Substance: IFOSFAMIDE
     Indication: DIFFUSE LARGE B-CELL LYMPHOMA
     Route: 065
  5. RITUXIMAB. [Suspect]
     Active Substance: RITUXIMAB
     Dosage: 8 CYCLES OF RCHOP
     Route: 041
  6. DOXORUBICIN [Suspect]
     Active Substance: DOXORUBICIN
     Dosage: TREATED WITH 6 CYCLES OF RCOMP
     Route: 065
  7. CARBOPLATIN. [Suspect]
     Active Substance: CARBOPLATIN
     Indication: DIFFUSE LARGE B-CELL LYMPHOMA
     Route: 065
  8. ALLOPURINOL. [Concomitant]
     Active Substance: ALLOPURINOL
     Indication: PROPHYLAXIS
     Dosage: 300 MG, DAILY, BEFORE STARTING AND DURING VENTOCLAX THERAPY
  9. RITUXIMAB. [Suspect]
     Active Substance: RITUXIMAB
     Dosage: AS PART OF R?ICE TREATMENT
     Route: 041
  10. RITUXIMAB. [Suspect]
     Active Substance: RITUXIMAB
     Dosage: NEW TREATMENT SCHEDULE: RCOMP, 6 CYCLES
     Route: 041
  11. PIXANTRONE [Suspect]
     Active Substance: PIXANTRONE
     Indication: DIFFUSE LARGE B-CELL LYMPHOMA
     Dosage: THE PATIENT WAS TREATED WITH 6 CYCLES (UNTIL 10 JUL 2019)
     Route: 065
  12. DOXORUBICIN [Suspect]
     Active Substance: DOXORUBICIN
     Indication: NON-HODGKIN^S LYMPHOMA
     Dosage: 8 CYCLES OF RCHOP
     Route: 065
  13. CYCLOPHOSPHAMIDE. [Suspect]
     Active Substance: CYCLOPHOSPHAMIDE
     Dosage: TREATED WITH 6 CYCLES OF RCOMP
     Route: 065
  14. ETOPOSIDE. [Suspect]
     Active Substance: ETOPOSIDE
     Indication: DIFFUSE LARGE B-CELL LYMPHOMA
     Route: 065
  15. ITRACONAZOLE. [Concomitant]
     Active Substance: ITRACONAZOLE
     Indication: PROPHYLAXIS
     Dosage: 1 SCOOP ORALLY TWICE A DAY
     Route: 048
  16. OXALIPLATIN. [Suspect]
     Active Substance: OXALIPLATIN
     Indication: DIFFUSE LARGE B-CELL LYMPHOMA
     Dosage: AS PART OF OXALI?DHAP THERAPY
     Route: 065
  17. VENETOCLAX. [Suspect]
     Active Substance: VENETOCLAX
     Indication: DIFFUSE LARGE B-CELL LYMPHOMA
     Dosage: 100 MG PER WEEK UNTIL 1,200 MG AND WITH A 1?WEEK SUSPENSION
     Route: 048
     Dates: start: 20200113
  18. CYCLOPHOSPHAMIDE. [Suspect]
     Active Substance: CYCLOPHOSPHAMIDE
     Indication: NON-HODGKIN^S LYMPHOMA
     Dosage: 8 CYCLES OF RCHOP
     Route: 065
  19. VINCRISTINE [Suspect]
     Active Substance: VINCRISTINE
     Dosage: TREATED WITH 6 CYCLES OF RCOMP
     Route: 065
  20. LAMIVUDINE. [Concomitant]
     Active Substance: LAMIVUDINE
     Indication: PROPHYLAXIS
     Dosage: 100 MG/ DAY
  21. RITUXIMAB. [Suspect]
     Active Substance: RITUXIMAB
     Indication: NON-HODGKIN^S LYMPHOMA
     Dosage: AS PART OF R?OXALI DHAP TREATMENT
     Route: 041
  22. DHAP [Suspect]
     Active Substance: CISPLATIN\CYTARABINE\DEXAMETHASONE
     Indication: DIFFUSE LARGE B-CELL LYMPHOMA
     Route: 065
  23. PREDNISONE. [Suspect]
     Active Substance: PREDNISONE
     Indication: NON-HODGKIN^S LYMPHOMA
     Dosage: 8 CYCLES OF RCHOP
     Route: 065
  24. PREDNISONE. [Suspect]
     Active Substance: PREDNISONE
     Dosage: TREATED WITH 6 CYCLES OF RCOMP
     Route: 065

REACTIONS (8)
  - Neutropenia [Fatal]
  - Sepsis [Fatal]
  - Leukopenia [Fatal]
  - Disease recurrence [Fatal]
  - General physical health deterioration [Fatal]
  - Drug ineffective [Unknown]
  - Thrombocytopenia [Fatal]
  - Myelosuppression [Fatal]

NARRATIVE: CASE EVENT DATE: 202006
